FAERS Safety Report 11936593 (Version 1)
Quarter: 2016Q1

REPORT INFORMATION
  Report Type: Spontaneous
  Country: FR (occurrence: FR)
  Receive Date: 20160121
  Receipt Date: 20160121
  Transmission Date: 20160526
  Serious: Yes (Hospitalization)
  Sender: FDA-Public Use
  Company Number: FR-JAZZ-2016-FR-000957

PATIENT
  Age: 73 Year
  Sex: Male

DRUGS (7)
  1. PRIALT [Suspect]
     Active Substance: ZICONOTIDE ACETATE
     Dosage: UNK ?G, UNK
     Route: 037
     Dates: start: 2012, end: 2013
  2. MORPHINE SULF [Suspect]
     Active Substance: MORPHINE SULFATE
     Indication: NEUROPATHY PERIPHERAL
     Dosage: 1 MG, UNK
     Route: 037
     Dates: start: 2010
  3. PRIALT [Suspect]
     Active Substance: ZICONOTIDE ACETATE
     Dosage: 0.125 ?G, QH
     Route: 037
     Dates: start: 2012, end: 2012
  4. PRIALT [Suspect]
     Active Substance: ZICONOTIDE ACETATE
     Dosage: 0.058-0.081 ?G, QH
     Route: 037
     Dates: start: 2013, end: 2015
  5. PRIALT [Suspect]
     Active Substance: ZICONOTIDE ACETATE
     Dosage: 0.081 ?G, QH
     Route: 037
     Dates: start: 20150909, end: 20151126
  6. PRIALT [Suspect]
     Active Substance: ZICONOTIDE ACETATE
     Indication: NEUROPATHY PERIPHERAL
     Dosage: UNK ?G, UNK
     Route: 037
     Dates: start: 2010, end: 2012
  7. PRIALT [Suspect]
     Active Substance: ZICONOTIDE ACETATE
     Dosage: 0.042 ?G, QH
     Route: 037
     Dates: start: 20151126, end: 20151202

REACTIONS (5)
  - Fear [Recovered/Resolved]
  - Hallucination, auditory [Recovered/Resolved]
  - Sleep disorder [Recovered/Resolved]
  - Abnormal behaviour [Recovered/Resolved]
  - Hallucination, visual [Recovered/Resolved]

NARRATIVE: CASE EVENT DATE: 20151126
